FAERS Safety Report 6092657-7 (Version None)
Quarter: 2009Q1

REPORT INFORMATION
  Report Type: 
  Country: None (occurrence: None)
  Receive Date: 20090225
  Receipt Date: 20090213
  Transmission Date: 20090719
  Serious: Yes (Other)
  Sender: FDA-Public Use
  Company Number: PHHY2009FR05544

PATIENT
  Age: 24 Year
  Sex: Male

DRUGS (4)
  1. LEPONEX [Suspect]
     Indication: PERSECUTORY DELUSION
     Dosage: UNK
  2. LEPONEX [Suspect]
     Dosage: 750 MG DAILY
     Dates: start: 20090203
  3. LEPONEX [Suspect]
     Dosage: 850 MG DAILY
     Dates: start: 20090210
  4. TERCIAN [Concomitant]

REACTIONS (3)
  - DRUG LEVEL ABOVE THERAPEUTIC [None]
  - ELECTROCARDIOGRAM QT PROLONGED [None]
  - TACHYCARDIA [None]
